FAERS Safety Report 4388032-3 (Version None)
Quarter: 2004Q2

REPORT INFORMATION
  Report Type: 
  Country: None (occurrence: None)
  Receive Date: 20040607
  Receipt Date: 20030623
  Transmission Date: 20050107
  Serious: Yes (Other)
  Sender: FDA-Public Use
  Company Number: 323295

PATIENT
  Sex: Female
  Weight: 3.4 kg

DRUGS (2)
  1. ACCUTANE [Suspect]
     Indication: ACNE CYSTIC
     Dosage: 40 MG 2 PER DAY ORAL
     Route: 048
     Dates: start: 20020201, end: 20020801
  2. ORAL CONTRACEPTIVE NOS [Concomitant]

REACTIONS (7)
  - DEPRESSIVE SYMPTOM [None]
  - JAUNDICE [None]
  - LIVE BIRTH [None]
  - NORMAL DELIVERY [None]
  - PIGMENTED NAEVUS [None]
  - PREGNANCY [None]
  - PYREXIA [None]
